FAERS Safety Report 13893987 (Version 1)
Quarter: 2017Q3

REPORT INFORMATION
  Report Type: Spontaneous
  Country: US (occurrence: US)
  Receive Date: 20170822
  Receipt Date: 20170822
  Transmission Date: 20171127
  Serious: No
  Sender: FDA-Public Use
  Company Number: US-ENDO PHARMACEUTICALS INC-2017-002702

PATIENT
  Age: 54 Year
  Sex: Female
  Weight: 128.98 kg

DRUGS (35)
  1. LORATADINE. [Concomitant]
     Active Substance: LORATADINE
     Indication: SEASONAL ALLERGY
  2. VITAMIN D                          /00107901/ [Concomitant]
     Active Substance: ERGOCALCIFEROL
     Indication: WHITE BLOOD CELL COUNT INCREASED
  3. THIAMINE. [Concomitant]
     Active Substance: THIAMINE
     Indication: WHITE BLOOD CELL COUNT INCREASED
  4. BIOTIN [Concomitant]
     Active Substance: BIOTIN
     Indication: THYROID DISORDER
  5. METHOCARBAMOL. [Suspect]
     Active Substance: METHOCARBAMOL
     Indication: PAIN
     Dosage: 750 MG, TID
     Route: 065
  6. ALBUTEROL SULFATE SYRUP [Concomitant]
     Active Substance: ALBUTEROL SULFATE
     Indication: SEASONAL ALLERGY
  7. FLOVENT [Concomitant]
     Active Substance: FLUTICASONE PROPIONATE
     Indication: SEASONAL ALLERGY
  8. COZAAR [Concomitant]
     Active Substance: LOSARTAN POTASSIUM
     Indication: HYPERTENSION
  9. CYMBALTA [Concomitant]
     Active Substance: DULOXETINE HYDROCHLORIDE
     Indication: BACK DISORDER
  10. ILEVRO [Concomitant]
     Active Substance: NEPAFENAC
     Indication: INTRAOCULAR PRESSURE INCREASED
  11. MONTELUKAST SODIUM. [Concomitant]
     Active Substance: MONTELUKAST SODIUM
     Indication: SEASONAL ALLERGY
  12. VITAMIN B12 [Concomitant]
     Active Substance: CYANOCOBALAMIN
     Indication: WHITE BLOOD CELL COUNT INCREASED
  13. CALCIUM PLUS D3 [Concomitant]
     Indication: WHITE BLOOD CELL COUNT INCREASED
  14. EPIPEN [Concomitant]
     Active Substance: EPINEPHRINE
     Indication: HYPERSENSITIVITY
  15. ILEVRO [Concomitant]
     Active Substance: NEPAFENAC
     Indication: EYE PAIN
  16. FOLIC ACID TABLETS [Concomitant]
     Active Substance: FOLIC ACID
     Indication: WHITE BLOOD CELL COUNT INCREASED
  17. PYRIDOXINE [Concomitant]
     Active Substance: PYRIDOXINE
     Indication: THYROID DISORDER
  18. ATIVAN [Concomitant]
     Active Substance: LORAZEPAM
     Indication: ANXIETY
  19. MULTIVITAMIN                       /00097801/ [Concomitant]
     Active Substance: VITAMINS
     Indication: SEASONAL ALLERGY
  20. ZETIA [Concomitant]
     Active Substance: EZETIMIBE
     Indication: BLOOD CHOLESTEROL
  21. AMBIEN [Concomitant]
     Active Substance: ZOLPIDEM TARTRATE
     Indication: INSOMNIA
  22. ETODOLAC. [Concomitant]
     Active Substance: ETODOLAC
     Indication: PAIN
  23. LATANOPROST. [Concomitant]
     Active Substance: LATANOPROST
     Indication: GLAUCOMA
  24. PAZEO [Concomitant]
     Active Substance: OLOPATADINE HYDROCHLORIDE
     Indication: SEASONAL ALLERGY
  25. VITAMIN C [Concomitant]
     Active Substance: ASCORBIC ACID
     Indication: WHITE BLOOD CELL COUNT INCREASED
  26. PROBIOTIC                          /06395501/ [Concomitant]
     Active Substance: BIFIDOBACTERIUM ANIMALIS LACTIS
     Indication: WHITE BLOOD CELL COUNT INCREASED
  27. ROBAXIN [Suspect]
     Active Substance: METHOCARBAMOL
     Indication: PAIN
     Dosage: 500 MG, TID
     Route: 065
     Dates: start: 2014, end: 201704
  28. METHOCARBAMOL. [Suspect]
     Active Substance: METHOCARBAMOL
     Dosage: 500 MG, TID
     Route: 065
  29. SYNTHROID [Concomitant]
     Active Substance: LEVOTHYROXINE SODIUM
     Indication: THYROID DISORDER
  30. B-COMPLEX                          /00003501/ [Concomitant]
     Active Substance: CYANOCOBALAMIN\DEXPANTHENOL\NIACINAMIDE\PYRIDOXINE HYDROCHLORIDE\RIBOFLAVIN 5^-PHOSPHATE SODIUM\THIAMINE HYDROCHLORIDE\VITAMIN B COMPLEX
     Indication: WHITE BLOOD CELL COUNT INCREASED
  31. NEURONTIN [Concomitant]
     Active Substance: GABAPENTIN
     Indication: PAIN
  32. DICYCLOMINE HYDROCHLORIDE. [Concomitant]
     Active Substance: DICYCLOMINE HYDROCHLORIDE
     Indication: ABDOMINAL PAIN UPPER
  33. PROTONIX [Concomitant]
     Active Substance: PANTOPRAZOLE SODIUM
     Indication: GASTROOESOPHAGEAL REFLUX DISEASE
  34. TRIAMCINOLONE [Concomitant]
     Active Substance: TRIAMCINOLONE
     Indication: RASH
  35. VITAMIN A                          /00056001/ [Concomitant]
     Active Substance: RETINOL
     Indication: WHITE BLOOD CELL COUNT INCREASED

REACTIONS (2)
  - Fall [Unknown]
  - Muscular weakness [Unknown]

NARRATIVE: CASE EVENT DATE: 201610
